FAERS Safety Report 9555282 (Version 1)
Quarter: 2013Q3

REPORT INFORMATION
  Report Type: Spontaneous
  Country: CH (occurrence: CH)
  Receive Date: 20130926
  Receipt Date: 20130926
  Transmission Date: 20140515
  Serious: Yes (Other)
  Sender: FDA-Public Use
  Company Number: CH-ELI_LILLY_AND_COMPANY-CH201309006338

PATIENT
  Age: 72 Year
  Sex: Female

DRUGS (19)
  1. FLUCTINE [Suspect]
     Dosage: 40 MG, QD
     Dates: start: 2010, end: 20130306
  2. SEROQUEL XR [Suspect]
     Dosage: 50 MG, QD
     Dates: start: 20130204, end: 20130211
  3. SEROQUEL XR [Suspect]
     Dosage: 150 MG, QD
     Dates: start: 20130212, end: 20130213
  4. SEROQUEL XR [Suspect]
     Dosage: 400 MG, QD
     Dates: start: 20130213, end: 20130218
  5. ABILIFY [Suspect]
     Dosage: 10 MG, QD
     Dates: start: 20130219, end: 20130221
  6. ABILIFY [Suspect]
     Dosage: 15 MG, QD
     Dates: start: 20130222, end: 20130301
  7. ABILIFY [Suspect]
     Dosage: 20 MG, QD
     Dates: start: 20130302, end: 20130307
  8. REMERON [Suspect]
     Dosage: 30 MG, QD
     Dates: start: 2010, end: 20130203
  9. REMERON [Suspect]
     Dosage: 15 MG, QD
     Dates: start: 20130204, end: 20130218
  10. PANTOZOL                           /01263204/ [Concomitant]
     Dosage: 20 MG, QD
     Dates: start: 2012
  11. ASS [Concomitant]
     Dosage: 100 MG, QD
     Dates: start: 2010, end: 20130205
  12. TENORMIN [Concomitant]
     Dosage: 50 MG, QD
     Dates: start: 2010
  13. TORASEMID [Concomitant]
     Dosage: 5 MG, QD
     Dates: start: 2010
  14. VASCORD                            /06230801/ [Concomitant]
     Dosage: 20MG
     Dates: start: 2013
  15. VASCORD                            /06230801/ [Concomitant]
     Dosage: 5 MG, UNK
  16. VASCORD                            /06230801/ [Concomitant]
     Dosage: 12.5 MG, UNK
  17. SPIRICORT [Concomitant]
     Dosage: 20 MG, QD
     Dates: start: 20130316, end: 20130320
  18. CIPRALEX [Concomitant]
     Dosage: 5 MG, QD
     Dates: start: 20130318
  19. TEMESTA                            /00273201/ [Concomitant]
     Dosage: 3 MG, QD
     Dates: start: 20130125

REACTIONS (1)
  - Bicytopenia [Recovered/Resolved]
